FAERS Safety Report 6443561-3 (Version None)
Quarter: 2009Q4

REPORT INFORMATION
  Report Type: 
  Country: None (occurrence: None)
  Receive Date: 20091117
  Receipt Date: 20091104
  Transmission Date: 20100525
  Serious: Yes (Hospitalization)
  Sender: FDA-Public Use
  Company Number: IT-ROCHE-666783

PATIENT
  Sex: Female

DRUGS (2)
  1. PEG-INTERFERON ALFA 2A (RO 25-8310) [Suspect]
     Indication: CHRONIC HEPATITIS
     Route: 058
     Dates: start: 20081025, end: 20081220
  2. RIBAVIRIN [Suspect]
     Indication: CHRONIC HEPATITIS
     Dosage: FREQUENCY:  DAILY.
     Route: 048
     Dates: start: 20081025, end: 20081224

REACTIONS (2)
  - EPISTAXIS [None]
  - HYPERTENSIVE CRISIS [None]
